FAERS Safety Report 8816482 (Version 1)
Quarter: 2012Q4

REPORT INFORMATION
  Report Type: Spontaneous
  Country: US (occurrence: None)
  Receive Date: 20120927
  Receipt Date: 20120927
  Transmission Date: 20130627
  Serious: Yes (Disabling)
  Sender: FDA-Public Use
  Company Number: DSA_59499_2012

PATIENT
  Age: 51 Year
  Sex: Male

DRUGS (32)
  1. OMEPRAZOLE [Concomitant]
  2. NYSTATIN W/TRIAMCINOLONE [Concomitant]
  3. OXYBUTYNIN [Concomitant]
  4. ZYPREXA [Concomitant]
  5. MILK OF MAGNESIA [Concomitant]
  6. LORAZEPAM [Concomitant]
  7. MIRALAX [Concomitant]
  8. DEBROX [Concomitant]
  9. CALMOSEPTINE [Concomitant]
  10. REMEDY PASTE [Concomitant]
  11. VITAMIN D [Concomitant]
  12. MEGACE [Concomitant]
  13. SERTRALINE [Concomitant]
  14. FERROUS SULFATE [Concomitant]
  15. RISPERIDONE [Concomitant]
  16. MACROBID [Concomitant]
  17. TWOCAL HN [Concomitant]
  18. ENSURE [Concomitant]
  19. FENTANYL [Concomitant]
  20. XENAZINE 25 MG (NOT SPECIFIED) [Suspect]
     Indication: HUNTINGTON^S DISEASE
     Route: 048
     Dates: start: 20120504, end: 20120815
  21. XENAZINE 25 MG (NOT SPECIFIED) [Suspect]
     Indication: HUNTINGTON^S DISEASE
  22. ZOLPIDEM [Concomitant]
  23. ONDANSETRON [Concomitant]
  24. TOLNAFTATE [Concomitant]
  25. CHLORHEXIDINE GLUCONATE [Concomitant]
  26. ACETAMINOPHEN [Concomitant]
  27. NAPROXEN [Concomitant]
  28. CLONAZEPAM [Concomitant]
  29. FIBER [Concomitant]
  30. ZYPREXA [Concomitant]
  31. TEMAZEPAM [Concomitant]
  32. FLUOXETINE [Concomitant]

REACTIONS (9)
  - Amnesia [None]
  - Abnormal behaviour [None]
  - Gait disturbance [None]
  - Judgement impaired [None]
  - Parkinsonism [None]
  - Dysarthria [None]
  - Ataxia [None]
  - Depression [None]
  - Contraindication to medical treatment [None]
